FAERS Safety Report 25797142 (Version 1)
Quarter: 2025Q3

REPORT INFORMATION
  Report Type: Spontaneous
  Country: EU (occurrence: EU)
  Receive Date: 20250912
  Receipt Date: 20250912
  Transmission Date: 20251020
  Serious: Yes (Life-Threatening, Hospitalization, Other)
  Sender: FRESENIUS KABI
  Company Number: None

PATIENT
  Age: 48 Year
  Sex: Female
  Weight: 88 kg

DRUGS (1)
  1. PACLITAXEL [Suspect]
     Active Substance: PACLITAXEL
     Indication: Endometrial cancer
     Route: 042
     Dates: end: 20250811

REACTIONS (6)
  - Chest discomfort [Recovered/Resolved]
  - Cardiovascular disorder [Recovered/Resolved]
  - Nausea [Recovered/Resolved]
  - Blood pressure decreased [Recovered/Resolved]
  - General physical health deterioration [Recovered/Resolved]
  - Suspected product quality issue [Unknown]

NARRATIVE: CASE EVENT DATE: 20250101
